FAERS Safety Report 6910740-8 (Version None)
Quarter: 2010Q3

REPORT INFORMATION
  Report Type: 
  Country: None (occurrence: None)
  Receive Date: 20100806
  Receipt Date: 20100727
  Transmission Date: 20110219
  Serious: Yes (Other)
  Sender: FDA-Public Use
  Company Number: JP-PFIZER INC-2010081999

PATIENT
  Age: 74 Year
  Sex: Female
  Weight: 45 kg

DRUGS (8)
  1. GABAPEN [Suspect]
     Indication: PAIN IN EXTREMITY
     Dosage: UNK
     Route: 048
     Dates: start: 20100630
  2. DEPAS [Concomitant]
     Indication: INSOMNIA
     Dosage: 0.5 MG, 1X/DAY
     Dates: start: 20100330
  3. CALCIUM CARBONATE [Concomitant]
     Indication: HYPERPHOSPHATAEMIA
     Dosage: UNK
     Dates: start: 20100316
  4. THYRADIN S [Concomitant]
     Indication: HYPOTHYROIDISM
     Dosage: 12.5 MG, 1X/DAY
     Dates: start: 20051007
  5. NORVASC [Concomitant]
     Indication: HYPERTENSION
     Dosage: 2.5 MG, 1X/DAY
     Dates: start: 20080103
  6. RENAGEL [Concomitant]
     Indication: HYPERPHOSPHATAEMIA
     Dosage: 500 MG, 1X/DAY
     Dates: start: 20080103
  7. ZYLORIC ^FAES^ [Concomitant]
     Indication: HYPERURICAEMIA
     Dosage: 100 MG, 1X/DAY
     Dates: start: 20080103
  8. TAKEPRON [Suspect]
     Indication: GASTRIC ULCER
     Dosage: 15 MG, 1X/DAY
     Dates: start: 20080103

REACTIONS (2)
  - MOUTH HAEMORRHAGE [None]
  - PAIN [None]
